FAERS Safety Report 14184419 (Version 2)
Quarter: 2017Q4

REPORT INFORMATION
  Report Type: Report from Study
  Country: DE (occurrence: DE)
  Receive Date: 20171113
  Receipt Date: 20171124
  Transmission Date: 20180321
  Serious: Yes (Hospitalization)
  Sender: FDA-Public Use
  Company Number: PHHO2017DE015250

PATIENT
  Age: 67 Year
  Sex: Female

DRUGS (17)
  1. LIXIANA [Concomitant]
     Active Substance: EDOXABAN TOSYLATE
     Indication: PARAESTHESIA
     Dosage: 60 MG, QD
     Route: 048
     Dates: start: 20160113
  2. SALBUHEXAL [Concomitant]
     Active Substance: ALBUTEROL
     Indication: ASTHMA
     Dosage: 100 INHALATION Q24H
     Route: 055
     Dates: start: 20170607
  3. OMEPRAZOLE. [Concomitant]
     Active Substance: OMEPRAZOLE
     Indication: ABDOMINAL PAIN UPPER
     Dosage: 20 MG, QD
     Route: 048
     Dates: start: 20170612
  4. ACZ885 [Suspect]
     Active Substance: CANAKINUMAB
     Indication: CARDIOVASCULAR EVENT PROPHYLAXIS
     Dosage: 150 MG, B
     Route: 058
  5. RAMIPRIL COMP [Concomitant]
     Active Substance: HYDROCHLOROTHIAZIDE\RAMIPRIL
     Indication: HYPERTENSION
     Dosage: 5125 MG, QD
     Route: 048
     Dates: start: 200007
  6. STIOLTO RESPIMAT [Concomitant]
     Active Substance: OLODATEROL HYDROCHLORIDE\TIOTROPIUM BROMIDE MONOHYDRATE
     Indication: ASTHMA
     Dosage: 100 INHALATION Q24H
     Route: 055
     Dates: start: 20170607
  7. CETRIZIN [Concomitant]
     Indication: ASTHMA
     Dosage: 10 MG, QD
     Route: 048
     Dates: start: 20170612, end: 20170702
  8. PENICILLIN [Concomitant]
     Active Substance: PENICILLIN
     Indication: ERYSIPELAS
     Dosage: 1.5 MG, QD
     Route: 048
     Dates: start: 20170719
  9. ARCOXIA [Concomitant]
     Active Substance: ETORICOXIB
     Indication: GOUT
     Dosage: 90 MG, QD
     Route: 048
     Dates: start: 20170410
  10. FUROSEMIDE. [Concomitant]
     Active Substance: FUROSEMIDE
     Indication: OEDEMA
     Dosage: 40 MG, QD
     Route: 048
     Dates: start: 20170619
  11. ACZ885 [Suspect]
     Active Substance: CANAKINUMAB
     Indication: CARDIOVASCULAR EVENT PROPHYLAXIS
     Dosage: 150 MG/ML, UNK
     Route: 058
  12. COLCHYSAT [Concomitant]
     Indication: GOUT
     Dosage: 100 ML, QD
     Route: 048
     Dates: start: 20170322
  13. PREDNIHEXAL [Concomitant]
     Active Substance: PREDNISOLONE ACETATE
     Indication: PRURITUS
     Dosage: 50 MG, QD
     Route: 048
     Dates: start: 20170619
  14. CLOTRIMAZOL [Concomitant]
     Active Substance: CLOTRIMAZOLE
     Indication: ERYSIPELAS
     Dosage: 4 G, BID
     Route: 050
     Dates: start: 20170710
  15. ADVANTAN [Concomitant]
     Active Substance: METHYLPREDNISOLONE ACEPONATE
     Indication: ERYSIPELAS
     Dosage: 200 G, BID
     Route: 050
     Dates: start: 20170710
  16. ALLOBETA [Concomitant]
     Indication: GOUT
     Dosage: 100 MG, QD
     Route: 048
     Dates: start: 20170522
  17. METOHEXAL [Concomitant]
     Active Substance: METOPROLOL SUCCINATE
     Indication: PROPHYLAXIS
     Dosage: 95 MG, QD
     Route: 048
     Dates: start: 200007

REACTIONS (1)
  - Myocardial infarction [Unknown]

NARRATIVE: CASE EVENT DATE: 20171026
